FAERS Safety Report 5446828-0 (Version None)
Quarter: 2007Q3

REPORT INFORMATION
  Report Type: 
  Country: None (occurrence: None)
  Receive Date: 20070907
  Receipt Date: 20070828
  Transmission Date: 20080115
  Serious: Yes (Hospitalization, Other)
  Sender: FDA-Public Use
  Company Number: US-ABBOTT-07P-163-0415654-00

PATIENT
  Sex: Female
  Weight: 67.192 kg

DRUGS (9)
  1. HUMIRA [Suspect]
     Indication: RHEUMATOID ARTHRITIS
     Route: 058
     Dates: start: 20050101, end: 20070713
  2. HUMIRA [Suspect]
     Route: 058
     Dates: start: 20070810
  3. DOLASETRON MESILATE [Concomitant]
     Indication: NAUSEA
  4. MEGACE ES [Concomitant]
     Indication: MEDICAL DIET
  5. CLONAZEPAM [Concomitant]
     Indication: ANXIETY
  6. SERTRALINE [Concomitant]
     Indication: DRUG USE FOR UNKNOWN INDICATION
  7. AMLODIPINE [Concomitant]
     Indication: DRUG USE FOR UNKNOWN INDICATION
  8. ACTONEL [Concomitant]
     Indication: DRUG USE FOR UNKNOWN INDICATION
  9. NYSTATIN [Concomitant]
     Indication: SKIN EXFOLIATION
     Route: 061

REACTIONS (10)
  - ABASIA [None]
  - METASTASES TO SPINE [None]
  - MUSCLE SPASMS [None]
  - NASOPHARYNGITIS [None]
  - NEOPLASM MALIGNANT [None]
  - PAIN [None]
  - PNEUMONIA [None]
  - RASH [None]
  - SWELLING [None]
  - WEIGHT DECREASED [None]
